FAERS Safety Report 6450001-7 (Version None)
Quarter: 2009Q4

REPORT INFORMATION
  Report Type: 
  Country: None (occurrence: None)
  Receive Date: 20091123
  Receipt Date: 20091113
  Transmission Date: 20100525
  Serious: Yes (Other)
  Sender: FDA-Public Use
  Company Number: US-JNJFOC-20091104802

PATIENT
  Sex: Female
  Weight: 70.31 kg

DRUGS (3)
  1. DURAGESIC-100 [Suspect]
     Indication: BACK PAIN
     Route: 062
     Dates: start: 20070101, end: 20091001
  2. MORPHINE [Concomitant]
     Indication: BREAKTHROUGH PAIN
     Route: 048
  3. SINGULAIR [Concomitant]
     Indication: HYPERSENSITIVITY
     Route: 048

REACTIONS (2)
  - CONVULSION [None]
  - DRUG DOSE OMISSION [None]
